FAERS Safety Report 21130171 (Version 1)
Quarter: 2022Q3

REPORT INFORMATION
  Report Type: Spontaneous
  Country: PL (occurrence: PL)
  Receive Date: 20220726
  Receipt Date: 20220726
  Transmission Date: 20221027
  Serious: Yes (Hospitalization, Other)
  Sender: FDA-Public Use
  Company Number: PL-PBT-004900

PATIENT
  Age: 55 Year
  Sex: Female

DRUGS (9)
  1. TACROLIMUS [Suspect]
     Active Substance: TACROLIMUS
     Indication: Prophylaxis against transplant rejection
     Route: 065
     Dates: start: 201905
  2. MYCOPHENOLATE MOFETIL [Suspect]
     Active Substance: MYCOPHENOLATE MOFETIL
     Indication: Prophylaxis against transplant rejection
     Route: 048
     Dates: start: 202002
  3. VALGANCICLOVIR [Suspect]
     Active Substance: VALGANCICLOVIR
     Indication: Cytomegalovirus infection
     Route: 065
     Dates: start: 201906
  4. MEROPENEM [Suspect]
     Active Substance: MEROPENEM
     Indication: Antibiotic prophylaxis
     Dosage: 3 X 1 G
     Route: 065
     Dates: start: 201905
  5. VANCOMYCIN [Suspect]
     Active Substance: VANCOMYCIN
     Indication: Antibiotic prophylaxis
     Dosage: 2 X 1 G
     Route: 065
     Dates: start: 201905
  6. TAZOBACTAM [Suspect]
     Active Substance: TAZOBACTAM
     Indication: Antibiotic prophylaxis
     Dosage: 3 X 4.5 G
     Route: 065
     Dates: start: 201905
  7. FLUCONAZOLE [Suspect]
     Active Substance: FLUCONAZOLE
     Indication: Antifungal treatment
     Dosage: 1 X 600 MG
     Route: 065
     Dates: start: 201905
  8. FONDAPARINUX [Suspect]
     Active Substance: FONDAPARINUX
     Indication: Anticoagulant therapy
     Route: 065
     Dates: start: 201905
  9. ORNITHINE [Suspect]
     Active Substance: ORNITHINE
     Indication: Postoperative care
     Route: 065
     Dates: start: 201905

REACTIONS (26)
  - Nephropathy toxic [Unknown]
  - Hypertransaminasaemia [Unknown]
  - Hepatorenal syndrome [Unknown]
  - Acute kidney injury [Unknown]
  - Hepatic artery thrombosis [Unknown]
  - Bile duct necrosis [Unknown]
  - Cytomegalovirus infection [Unknown]
  - Epstein-Barr virus infection [Unknown]
  - Oesophageal candidiasis [Unknown]
  - Dysphagia [Unknown]
  - Anaemia [Unknown]
  - Faeces discoloured [Unknown]
  - Hypertension [Recovered/Resolved]
  - Diabetes mellitus [Recovered/Resolved]
  - Polyuria [Unknown]
  - Ascites [Recovering/Resolving]
  - Incarcerated umbilical hernia [Unknown]
  - Overdose [Unknown]
  - Hydronephrosis [Unknown]
  - Bacteraemia [Unknown]
  - Urinary tract infection [Recovered/Resolved]
  - Urinary retention [Unknown]
  - Candida infection [Unknown]
  - Metabolic acidosis [Recovered/Resolved]
  - Nausea [Unknown]
  - Vomiting [Unknown]

NARRATIVE: CASE EVENT DATE: 20190101
